FAERS Safety Report 11624662 (Version 1)
Quarter: 2015Q4

REPORT INFORMATION
  Report Type: Spontaneous
  Country: US (occurrence: None)
  Receive Date: 20151009
  Receipt Date: 20151009
  Transmission Date: 20160304
  Serious: Yes (Hospitalization)
  Sender: FDA-Public Use
  Company Number: None

PATIENT
  Age: 73 Year
  Sex: Male
  Weight: 86.4 kg

DRUGS (18)
  1. LEVOTHYROXINE SODIUM. [Concomitant]
     Active Substance: LEVOTHYROXINE SODIUM
  2. IRON [Concomitant]
     Active Substance: IRON
  3. LANTUS [Concomitant]
     Active Substance: INSULIN GLARGINE
  4. NORVASC [Concomitant]
     Active Substance: AMLODIPINE BESYLATE
  5. NOVOLOG [Concomitant]
     Active Substance: INSULIN ASPART
  6. PROGRAF [Concomitant]
     Active Substance: TACROLIMUS\TACROLIMUS ANHYDROUS
  7. HYDROCHLOROTHIAZIDE. [Concomitant]
     Active Substance: HYDROCHLOROTHIAZIDE
  8. PRADAXA [Concomitant]
     Active Substance: DABIGATRAN ETEXILATE MESYLATE
  9. PRILOSEC [Concomitant]
     Active Substance: OMEPRAZOLE MAGNESIUM
  10. FLOMAX [Concomitant]
     Active Substance: TAMSULOSIN HYDROCHLORIDE
  11. FLUROURACIL [Concomitant]
     Active Substance: FLUOROURACIL
  12. BACTRIM [Concomitant]
     Active Substance: SULFAMETHOXAZOLE\TRIMETHOPRIM
  13. RIBAVIRIN 200MG [Suspect]
     Active Substance: RIBAVIRIN
     Indication: HEPATITIS C
     Route: 048
     Dates: start: 20150304, end: 20150526
  14. MAG-OXIDE [Concomitant]
  15. MULTIPLE VITAMINS [Concomitant]
     Active Substance: VITAMINS
  16. THIAMINE. [Concomitant]
     Active Substance: THIAMINE
  17. HARVONI [Suspect]
     Active Substance: LEDIPASVIR\SOFOSBUVIR
     Indication: HEPATITIS C
     Dosage: 90/400MG
     Route: 048
     Dates: start: 20150304, end: 20150526
  18. CIALIS [Concomitant]
     Active Substance: TADALAFIL

REACTIONS (7)
  - Dementia [None]
  - Haematuria [None]
  - Urinary tract infection [None]
  - Cholelithiasis [None]
  - Chromaturia [None]
  - Amnesia [None]
  - Incontinence [None]

NARRATIVE: CASE EVENT DATE: 20150404
